FAERS Safety Report 4762160-2 (Version None)
Quarter: 2005Q3

REPORT INFORMATION
  Report Type: 
  Country: None (occurrence: None)
  Receive Date: 20050906
  Receipt Date: 20050906
  Transmission Date: 20060218
  Serious: Yes (Other)
  Sender: FDA-Public Use
  Company Number: None

PATIENT
  Age: 40 Year
  Sex: Male
  Weight: 77.1115 kg

DRUGS (1)
  1. COLD-EEZE    UNKNOWN - DIPOSED OF PRODUCT [Suspect]
     Indication: NASOPHARYNGITIS
     Dosage: ONE SPRAY     ONE-TIME

REACTIONS (5)
  - AGEUSIA [None]
  - ANOSMIA [None]
  - ANXIETY [None]
  - PHARMACEUTICAL PRODUCT COMPLAINT [None]
  - SINUS HEADACHE [None]
